FAERS Safety Report 18563264 (Version 1)
Quarter: 2020Q4

REPORT INFORMATION
  Report Type: Spontaneous
  Country: JP (occurrence: JP)
  Receive Date: 20201201
  Receipt Date: 20201201
  Transmission Date: 20210114
  Serious: Yes (Hospitalization)
  Sender: FDA-Public Use
  Company Number: JP-ROCHE-2723949

PATIENT
  Age: 72 Year
  Sex: Male

DRUGS (1)
  1. XOLAIR [Suspect]
     Active Substance: OMALIZUMAB
     Indication: ASPIRIN-EXACERBATED RESPIRATORY DISEASE
     Dosage: UNK
     Route: 058
     Dates: start: 201802

REACTIONS (3)
  - Off label use [Unknown]
  - Organising pneumonia [Unknown]
  - Intentional product use issue [Unknown]
